FAERS Safety Report 21691865 (Version 1)
Quarter: 2022Q4

REPORT INFORMATION
  Report Type: Spontaneous
  Country: US (occurrence: US)
  Receive Date: 20221207
  Receipt Date: 20221207
  Transmission Date: 20230113
  Serious: No
  Sender: FDA-Public Use
  Company Number: US-GLENMARK PHARMACEUTICALS-2022GMK074125

PATIENT

DRUGS (2)
  1. CICLOPIROX OLAMINE [Suspect]
     Active Substance: CICLOPIROX OLAMINE
     Indication: Tinea cruris
     Dosage: UNK
     Route: 061
  2. CICLOPIROX OLAMINE [Suspect]
     Active Substance: CICLOPIROX OLAMINE
     Indication: Tinea pedis

REACTIONS (4)
  - Expired product administered [Unknown]
  - Product use complaint [Unknown]
  - Drug ineffective [Unknown]
  - Product expiration date issue [Unknown]
